FAERS Safety Report 18809513 (Version 2)
Quarter: 2021Q1

REPORT INFORMATION
  Report Type: Spontaneous
  Country: DE (occurrence: DE)
  Receive Date: 20210129
  Receipt Date: 20210208
  Transmission Date: 20210419
  Serious: Yes (Hospitalization, Other)
  Sender: FDA-Public Use
  Company Number: NVSC2021DE020665

PATIENT
  Age: 52 Year
  Sex: Male

DRUGS (1)
  1. CIPROFLOXACIN. [Suspect]
     Active Substance: CIPROFLOXACIN
     Indication: EAR, NOSE AND THROAT EXAMINATION
     Dosage: UNK
     Route: 065
     Dates: start: 20100330, end: 201004

REACTIONS (5)
  - Muscle rupture [Unknown]
  - Visual impairment [Unknown]
  - Tendon disorder [Unknown]
  - Asthenia [Unknown]
  - Pain [Not Recovered/Not Resolved]

NARRATIVE: CASE EVENT DATE: 201005
